FAERS Safety Report 8191448-0 (Version None)
Quarter: 2012Q1

REPORT INFORMATION
  Report Type: 
  Country: None (occurrence: None)
  Receive Date: 20120307
  Receipt Date: 20110829
  Transmission Date: 20120608
  Serious: No
  Sender: FDA-Public Use
  Company Number: US-ASTRAZENECA-2011SE51789

PATIENT
  Sex: Female

DRUGS (1)
  1. ZOMIG [Suspect]
     Route: 048

REACTIONS (7)
  - RETCHING [None]
  - APHAGIA [None]
  - INSOMNIA [None]
  - PAIN [None]
  - VOMITING [None]
  - NAUSEA [None]
  - HEADACHE [None]
